FAERS Safety Report 8945897 (Version 1)
Quarter: 2012Q4

REPORT INFORMATION
  Report Type: 
  Country: US (occurrence: US)
  Receive Date: 20121205
  Receipt Date: 20121205
  Transmission Date: 20130627
  Serious: Yes (Hospitalization)
  Sender: FDA-Public Use
  Company Number: US-PERRIGO-12US010171

PATIENT
  Age: 20 Year
  Sex: Male

DRUGS (1)
  1. NIGHTTIME MIXED BRY 872 [Suspect]
     Indication: INTENTIONAL OVERDOSE
     Dosage: 360 ml, single
     Route: 048
     Dates: start: 20121125, end: 20121125

REACTIONS (2)
  - Intentional overdose [Recovered/Resolved]
  - Hallucination [Recovered/Resolved]
